FAERS Safety Report 6897278-1 (Version None)
Quarter: 2010Q3

REPORT INFORMATION
  Report Type: 
  Country: None (occurrence: None)
  Receive Date: 20100802
  Receipt Date: 20070428
  Transmission Date: 20110219
  Serious: No
  Sender: FDA-Public Use
  Company Number: US-PFIZER INC-2007034378

PATIENT
  Sex: Female
  Weight: 62.6 kg

DRUGS (4)
  1. LYRICA [Suspect]
     Indication: NEURALGIA
     Dates: start: 20060101
  2. LISINOPRIL [Concomitant]
  3. SYNTHROID [Concomitant]
  4. INSULIN [Concomitant]

REACTIONS (4)
  - ARTHRALGIA [None]
  - INSOMNIA [None]
  - MEDICATION ERROR [None]
  - PAIN [None]
